FAERS Safety Report 8962360 (Version 1)
Quarter: 2012Q4

REPORT INFORMATION
  Report Type: Spontaneous
  Country: US (occurrence: None)
  Receive Date: 20120917
  Receipt Date: 20120917
  Transmission Date: 20130627
  Serious: Yes (Disabling)
  Sender: FDA-Public Use
  Company Number: 2012SA065028

PATIENT
  Sex: Female

DRUGS (1)
  1. CAPSAICIN [Suspect]
     Indication: ARTHRITIS
     Route: 061
     Dates: start: 2012

REACTIONS (3)
  - Pain [None]
  - Gait disturbance [None]
  - Discomfort [None]
